FAERS Safety Report 9792808 (Version 1)
Quarter: 2014Q1

REPORT INFORMATION
  Report Type: Spontaneous
  Country: US (occurrence: US)
  Receive Date: 20140102
  Receipt Date: 20140102
  Transmission Date: 20141002
  Serious: No
  Sender: FDA-Public Use
  Company Number: US-SANOFI-AVENTIS-2013SA040527

PATIENT
  Age: 51 Year
  Sex: Female
  Weight: 93.89 kg

DRUGS (18)
  1. AUBAGIO [Suspect]
     Indication: MULTIPLE SCLEROSIS
     Route: 048
     Dates: start: 20130116
  2. OMEPRAZOLE [Concomitant]
     Indication: GASTROOESOPHAGEAL REFLUX DISEASE
  3. TOPIRAMATE [Concomitant]
     Indication: PAIN
     Dosage: DOSE: 2-50 MG
  4. PRO-AIR [Concomitant]
     Indication: ASTHMA
     Dosage: DOSE:2 PUFF(S)
  5. ADVAIR [Concomitant]
     Indication: ASTHMA
     Dosage: STRENGTH: 500/50 (UNITS NOT SPECIFIED) DOSE:2 PUFF(S)
  6. TRIAMCINOLONE ACETONIDE [Concomitant]
     Indication: MULTIPLE ALLERGIES
     Dosage: 1 SPRAY EACH SIDE
  7. VITAMIN D [Concomitant]
     Dosage: DOSE:500 UNIT(S)
  8. MULTIVITAMINS [Concomitant]
  9. TRAMADOL [Concomitant]
  10. LOPERAMIDE [Concomitant]
  11. FUROSEMIDE [Concomitant]
  12. GABAPENTIN [Concomitant]
     Dosage: DOSE: 200 (UNITS NOT SPECIFIED)
  13. AMPYRA [Concomitant]
  14. DIPHENHYDRAMINE [Concomitant]
  15. MONTELUKAST [Concomitant]
     Dosage: AM
  16. CITALOPRAM [Concomitant]
     Dosage: AM
  17. METOPROLOL [Concomitant]
     Dosage: AM
  18. NUVIGIL [Concomitant]
     Dosage: AM

REACTIONS (8)
  - Dry skin [Not Recovered/Not Resolved]
  - Cough [Unknown]
  - Diarrhoea [Not Recovered/Not Resolved]
  - Alopecia [Not Recovered/Not Resolved]
  - Paraesthesia [Not Recovered/Not Resolved]
  - Hypoaesthesia [Not Recovered/Not Resolved]
  - Condition aggravated [Not Recovered/Not Resolved]
  - Swelling [Not Recovered/Not Resolved]
